FAERS Safety Report 6145495-0 (Version None)
Quarter: 2009Q2

REPORT INFORMATION
  Report Type: 
  Country: None (occurrence: None)
  Receive Date: 20090402
  Receipt Date: 20090317
  Transmission Date: 20091009
  Serious: Yes (Other)
  Sender: FDA-Public Use
  Company Number: B0566982A

PATIENT
  Sex: 0

DRUGS (3)
  1. LAMIVUDINE [Suspect]
     Indication: ANTIVIRAL PROPHYLAXIS
  2. ADEFOVIR DIPIVOXIL KIT [Concomitant]
  3. CORTICOSTEROID [Concomitant]

REACTIONS (7)
  - DISEASE RECURRENCE [None]
  - DRUG RESISTANCE [None]
  - GENE MUTATION [None]
  - HEPATIC NECROSIS [None]
  - HEPATITIS B [None]
  - HEPATITIS FULMINANT [None]
  - LIVER TRANSPLANT [None]
